FAERS Safety Report 5918260-4 (Version None)
Quarter: 2008Q4

REPORT INFORMATION
  Report Type: 
  Country: None (occurrence: None)
  Receive Date: 20081014
  Receipt Date: 20081009
  Transmission Date: 20090506
  Serious: Yes (Disabling)
  Sender: FDA-Public Use
  Company Number: US-GILEAD-2008-0018161

PATIENT
  Sex: Male
  Weight: 99 kg

DRUGS (1)
  1. LETAIRIS [Suspect]
     Indication: LUNG DISORDER

REACTIONS (3)
  - DIALYSIS [None]
  - FLUID RETENTION [None]
  - RENAL FAILURE [None]
